FAERS Safety Report 7302001-2 (Version None)
Quarter: 2011Q1

REPORT INFORMATION
  Report Type: 
  Country: None (occurrence: None)
  Receive Date: 20110218
  Receipt Date: 20110211
  Transmission Date: 20110831
  Serious: Yes (Hospitalization, Other)
  Sender: FDA-Public Use
  Company Number: US-AMGEN-USASP2011008484

PATIENT
  Age: 44 Year
  Sex: Male

DRUGS (1)
  1. ENBREL [Suspect]
     Indication: PSORIASIS
     Dates: start: 20090601, end: 20091001

REACTIONS (5)
  - EJECTION FRACTION ABNORMAL [None]
  - CARDIAC FAILURE [None]
  - OXYGEN SATURATION ABNORMAL [None]
  - DYSPNOEA [None]
  - PSORIASIS [None]
